FAERS Safety Report 5161785-2 (Version None)
Quarter: 2006Q4

REPORT INFORMATION
  Report Type: 
  Country: None (occurrence: None)
  Receive Date: 20061121
  Receipt Date: 20061108
  Transmission Date: 20070319
  Serious: Yes (Disabling, Other)
  Sender: FDA-Public Use
  Company Number: 2006138488

PATIENT
  Sex: Male

DRUGS (1)
  1. CELEBREX [Suspect]
     Indication: ARTHROPATHY
     Dosage: ORAL
     Route: 048

REACTIONS (2)
  - DEEP VEIN THROMBOSIS [None]
  - PERIPHERAL CIRCULATORY FAILURE [None]
